FAERS Safety Report 22298274 (Version 1)
Quarter: 2023Q2

REPORT INFORMATION
  Report Type: Report from Study
  Country: FR (occurrence: FR)
  Receive Date: 20230509
  Receipt Date: 20230509
  Transmission Date: 20230721
  Serious: Yes (Other)
  Sender: FDA-Public Use
  Company Number: FR-BRISTOL-MYERS SQUIBB COMPANY-2023-043478

PATIENT
  Age: 43 Year
  Sex: Male
  Weight: 88 kg

DRUGS (6)
  1. LENALIDOMIDE [Suspect]
     Active Substance: LENALIDOMIDE
     Indication: Plasma cell myeloma
     Dosage: D1-D21
     Route: 048
     Dates: start: 20230119
  2. DEXAMETHASONE [Suspect]
     Active Substance: DEXAMETHASONE
     Indication: Plasma cell myeloma
     Dosage: D1,8,15,22
     Route: 048
     Dates: start: 20230119
  3. ISATUXIMAB [Suspect]
     Active Substance: ISATUXIMAB
     Indication: Plasma cell myeloma
     Dosage: D1,D8,D15,D25(C1) AND D1,D15 (C2-C6)
     Route: 042
     Dates: start: 20230119
  4. CARFILZOMIB [Suspect]
     Active Substance: CARFILZOMIB
     Indication: Plasma cell myeloma
     Dosage: 40 MG ON D1, 112 MG ON D8,D15 (FREQUNECY: D1,8,15)
     Route: 042
     Dates: start: 20230119
  5. CARFILZOMIB [Suspect]
     Active Substance: CARFILZOMIB
     Dosage: 40 MG ON D1, 112 MG ON D8,D15 (FREQUNECY: D1,8,15)
     Route: 042
     Dates: start: 20230126
  6. CARFILZOMIB [Suspect]
     Active Substance: CARFILZOMIB
     Dosage: 40 MG ON D1, 112 MG ON D8,D15 (FREQUNECY: D1,8,15)
     Route: 042
     Dates: start: 20230202

REACTIONS (1)
  - Toxic skin eruption [Recovering/Resolving]

NARRATIVE: CASE EVENT DATE: 20230126
